FAERS Safety Report 23513515 (Version 1)
Quarter: 2024Q1

REPORT INFORMATION
  Report Type: Spontaneous
  Country: TR (occurrence: TR)
  Receive Date: 20240212
  Receipt Date: 20240212
  Transmission Date: 20240409
  Serious: Yes (Other)
  Sender: FDA-Public Use
  Company Number: TR-STRIDES ARCOLAB LIMITED-2024SP001487

PATIENT
  Age: 51 Year
  Sex: Female

DRUGS (7)
  1. MEGESTROL ACETATE [Suspect]
     Active Substance: MEGESTROL ACETATE
     Indication: Uterine leiomyosarcoma
     Dosage: UNK
     Route: 065
  2. SULFASALAZINE [Suspect]
     Active Substance: SULFASALAZINE
     Indication: Spondyloarthropathy
     Dosage: UNK
     Route: 065
  3. IFOSFAMIDE [Suspect]
     Active Substance: IFOSFAMIDE
     Indication: Uterine leiomyosarcoma
     Dosage: UNK, CYCLICAL (3 CYCLES, AS PALLIATIVE COMBINATION CHEMOTHERAPY)
     Route: 065
  4. MESNA [Suspect]
     Active Substance: MESNA
     Indication: Uterine leiomyosarcoma
     Dosage: UNK, CYCLICAL (3 CYCLES, AS PALLIATIVE COMBINATION CHEMOTHERAPY)
     Route: 065
  5. ADRIAMYCIN [Suspect]
     Active Substance: DOXORUBICIN HYDROCHLORIDE
     Indication: Uterine leiomyosarcoma
     Dosage: UNK, CYCLICAL (3 CYCLES, AS PALLIATIVE COMBINATION CHEMOTHERAPY)
     Route: 065
  6. PAZOPANIB [Suspect]
     Active Substance: PAZOPANIB
     Indication: Uterine leiomyosarcoma
     Dosage: UNK
     Route: 065
  7. PAZOPANIB [Suspect]
     Active Substance: PAZOPANIB
     Dosage: UNK (TREATMENT RESUMED)
     Route: 065

REACTIONS (2)
  - Rheumatic disorder [Unknown]
  - Drug ineffective for unapproved indication [Unknown]
